FAERS Safety Report 15484281 (Version 2)
Quarter: 2019Q2

REPORT INFORMATION
  Report Type: Spontaneous
  Country: US (occurrence: US)
  Receive Date: 20181010
  Receipt Date: 20190607
  Transmission Date: 20190711
  Serious: Yes (Other)
  Sender: FDA-Public Use
  Company Number: US-PFIZER INC-2016303725

PATIENT
  Age: 10 Year
  Sex: Male
  Weight: 19 kg

DRUGS (2)
  1. BENEFIX [Suspect]
     Active Substance: COAGULATION FACTOR IX RECOMBINANT HUMAN\ISOPROPYL ALCOHOL
     Dosage: 1900 IU +/- 5% % DOSE: 100% OF DOSES: 5
  2. BENEFIX [Suspect]
     Active Substance: COAGULATION FACTOR IX RECOMBINANT HUMAN\ISOPROPYL ALCOHOL
     Indication: FACTOR IX DEFICIENCY
     Dosage: 1900 IU +/- 5% % DOSE: 100% OF DOSES: 3

REACTIONS (2)
  - Haemorrhage [Unknown]
  - Joint injury [Unknown]
